FAERS Safety Report 21054246 (Version 1)
Quarter: 2022Q3

REPORT INFORMATION
  Report Type: Spontaneous
  Country: DE (occurrence: DE)
  Receive Date: 20220707
  Receipt Date: 20220707
  Transmission Date: 20221027
  Serious: Yes (Death, Other)
  Sender: FDA-Public Use
  Company Number: DE-BAXTER-2022BAX013564

PATIENT
  Sex: Male

DRUGS (1)
  1. CALCIUM CL\MAGNESIUM CL\POTASSIUM CL\SODIUM BICAR\SODIUM CL\SODIUM PHO [Suspect]
     Active Substance: CALCIUM CL\MAGNESIUM CL\POTASSIUM CL\SODIUM BICAR\SODIUM CL\SODIUM PHOSPHATE,DIB
     Dosage: UNK
     Route: 065

REACTIONS (4)
  - Death [Fatal]
  - Hypovolaemic shock [Unknown]
  - Anuria [Unknown]
  - Device operational issue [Unknown]

NARRATIVE: CASE EVENT DATE: 20220527
